FAERS Safety Report 25458050 (Version 2)
Quarter: 2025Q4

REPORT INFORMATION
  Report Type: Spontaneous
  Country: CN (occurrence: CN)
  Receive Date: 20250620
  Receipt Date: 20251217
  Transmission Date: 20260118
  Serious: Yes (Life-Threatening, Hospitalization)
  Sender: STRIDES
  Company Number: None

PATIENT
  Age: 44 Year
  Sex: Female

DRUGS (4)
  1. METHOTREXATE [Suspect]
     Active Substance: METHOTREXATE
     Indication: Uveitis
     Dosage: 12.5 MILLIGRAM, ONCE A WEEK
     Route: 065
     Dates: start: 2002
  2. MYCOPHENOLATE MOFETIL [Suspect]
     Active Substance: MYCOPHENOLATE MOFETIL
     Indication: Uveitis
     Dosage: 6 PILLS QD,
     Route: 048
     Dates: start: 2002
  3. METHYLPREDNISOLONE [Suspect]
     Active Substance: METHYLPREDNISOLONE
     Indication: Uveitis
     Dosage: PREADMISSION
     Route: 065
     Dates: start: 2002
  4. ADALIMUMAB [Suspect]
     Active Substance: ADALIMUMAB
     Indication: Uveitis
     Dosage: Q2W
     Route: 065
     Dates: start: 2002

REACTIONS (11)
  - Bronchiectasis [Recovering/Resolving]
  - Respiratory failure [Recovering/Resolving]
  - Liver function test abnormal [Recovered/Resolved]
  - COVID-19 pneumonia [Recovering/Resolving]
  - Pneumocystis jirovecii pneumonia [Unknown]
  - Pneumonia bacterial [Recovering/Resolving]
  - Pneumonia cytomegaloviral [Recovering/Resolving]
  - Pneumonia klebsiella [Recovering/Resolving]
  - Pneumonia acinetobacter [Recovering/Resolving]
  - Bronchopulmonary aspergillosis [Recovering/Resolving]
  - Penicillium infection [Recovering/Resolving]

NARRATIVE: CASE EVENT DATE: 20230601
